FAERS Safety Report 20329313 (Version 1)
Quarter: 2022Q1

REPORT INFORMATION
  Report Type: Report from Study
  Country: AT (occurrence: AT)
  Receive Date: 20220112
  Receipt Date: 20220112
  Transmission Date: 20220423
  Serious: Yes (Death, Other)
  Sender: FDA-Public Use
  Company Number: AT-GILEAD-2022-0564957

PATIENT
  Age: 46 Year
  Sex: Female
  Weight: 70 kg

DRUGS (2)
  1. SACITUZUMAB GOVITECAN [Suspect]
     Active Substance: SACITUZUMAB GOVITECAN
     Indication: Disease progression
     Dosage: 705.21 MG
     Route: 042
     Dates: start: 20211210, end: 20211210
  2. SACITUZUMAB GOVITECAN [Suspect]
     Active Substance: SACITUZUMAB GOVITECAN
     Dosage: 703.4 MG
     Route: 042
     Dates: start: 20211217, end: 20211217

REACTIONS (2)
  - Disease progression [Fatal]
  - Drug ineffective [Unknown]
